FAERS Safety Report 21649295 (Version 1)
Quarter: 2022Q4

REPORT INFORMATION
  Report Type: Report from Study
  Country: FR (occurrence: FR)
  Receive Date: 20221128
  Receipt Date: 20221128
  Transmission Date: 20230112
  Serious: Yes (Other)
  Sender: FDA-Public Use
  Company Number: FR-SUN PHARMACEUTICAL INDUSTRIES LTD-2022R1-365947

PATIENT
  Age: 77 Year
  Sex: Male
  Weight: 88 kg

DRUGS (2)
  1. METHOTREXATE [Suspect]
     Active Substance: METHOTREXATE
     Indication: Neurodermatitis
     Dosage: 10 MILLIGRAM, WEEKLY
     Route: 065
     Dates: start: 201912
  2. ALITRETINOIN [Suspect]
     Active Substance: ALITRETINOIN
     Indication: Neurodermatitis
     Dosage: 10 MILLIGRAM, OD
     Route: 065
     Dates: start: 201911

REACTIONS (2)
  - Disease recurrence [Unknown]
  - Hepatic enzyme increased [Unknown]
